FAERS Safety Report 8983205 (Version 3)
Quarter: 2013Q1

REPORT INFORMATION
  Report Type: Spontaneous
  Country: CO (occurrence: CO)
  Receive Date: 20121224
  Receipt Date: 20130122
  Transmission Date: 20140127
  Serious: Yes (Death)
  Sender: FDA-Public Use
  Company Number: PHHY2012CO115757

PATIENT
  Age: 49 Year
  Sex: Female

DRUGS (2)
  1. TASIGNA [Suspect]
     Indication: LEUKAEMIA
     Dosage: 200 MG, UNK
     Route: 048
     Dates: start: 20120627, end: 201212
  2. VERUM//BETAHISTINE HYDROCHLORIDE [Concomitant]
     Indication: VERTIGO

REACTIONS (6)
  - Cardiac arrest [Fatal]
  - Abdominal discomfort [Unknown]
  - Cough [Unknown]
  - Pyrexia [Unknown]
  - Headache [Unknown]
  - Vomiting [Unknown]
